FAERS Safety Report 5053135-7 (Version None)
Quarter: 2006Q3

REPORT INFORMATION
  Report Type: 
  Country: None (occurrence: None)
  Receive Date: 20060710
  Receipt Date: 20060704
  Transmission Date: 20061208
  Serious: Yes (Hospitalization)
  Sender: FDA-Public Use
  Company Number: BEWYE000305JUL06

PATIENT
  Age: 49 Year
  Sex: Female

DRUGS (3)
  1. EFFEXOR [Suspect]
     Dosage: 150 + 225MG 1X PER 1 DAY ORAL - SEE IMAGE
     Route: 048
     Dates: start: 20030101, end: 20060601
  2. EFFEXOR [Suspect]
     Dosage: 150 + 225MG 1X PER 1 DAY ORAL - SEE IMAGE
     Route: 048
     Dates: start: 20060601, end: 20060701
  3. XANAX (ALPRAZLAM) [Concomitant]

REACTIONS (2)
  - STEVENS-JOHNSON SYNDROME [None]
  - VASCULITIS NECROTISING [None]
